FAERS Safety Report 9415162 (Version 1)
Quarter: 2013Q3

REPORT INFORMATION
  Report Type: Spontaneous
  Country: US (occurrence: US)
  Receive Date: 20130723
  Receipt Date: 20130723
  Transmission Date: 20140515
  Serious: No
  Sender: FDA-Public Use
  Company Number: US-GALDERMA-US-GDP-12413566

PATIENT
  Age: 64 Year
  Sex: Female
  Weight: 73 kg

DRUGS (8)
  1. ORACEA [Suspect]
     Indication: ROSACEA
     Route: 048
     Dates: start: 20120409, end: 20120418
  2. METROGEL [Suspect]
     Indication: ROSACEA
     Route: 061
     Dates: start: 201202
  3. MULTIVITAMIN [Concomitant]
     Indication: VITAMIN SUPPLEMENTATION
  4. DIOVAN [Concomitant]
     Indication: PREHYPERTENSION
     Route: 048
  5. SINGULAR [Concomitant]
     Indication: HYPERSENSITIVITY
     Route: 048
  6. PREMARIN [Concomitant]
     Indication: HORMONE REPLACEMENT THERAPY
     Route: 048
  7. ECHINACEA [Concomitant]
     Route: 048
  8. COQ 10 [Concomitant]
     Route: 048

REACTIONS (6)
  - Gastrointestinal tract irritation [Recovered/Resolved]
  - Abdominal pain lower [Recovered/Resolved]
  - Abdominal pain [Recovered/Resolved]
  - Decreased appetite [Recovered/Resolved]
  - Condition aggravated [Recovered/Resolved]
  - Nausea [Recovered/Resolved]
